FAERS Safety Report 21702465 (Version 1)
Quarter: 2022Q4

REPORT INFORMATION
  Report Type: Spontaneous
  Country: US (occurrence: US)
  Receive Date: 20221208
  Receipt Date: 20221208
  Transmission Date: 20230112
  Serious: No
  Sender: FDA-Public Use
  Company Number: US-IBSA PHARMA INC.-2022IBS000266

PATIENT

DRUGS (2)
  1. TIROSINT [Suspect]
     Active Substance: LEVOTHYROXINE SODIUM
     Indication: Hypothyroidism
     Dosage: 2 CAPSULES ON TUESDAYS AND FRIDAYS AND 1 CAPSULE DAILY THE REMAINDER OF THE WEEK
     Route: 048
  2. ALUMINUM HYDROXIDE\MAGNESIUM CARBONATE [Suspect]
     Active Substance: ALUMINUM HYDROXIDE\MAGNESIUM CARBONATE
     Indication: Abdominal discomfort
     Dosage: AS NEEDED
     Route: 048

REACTIONS (2)
  - Alopecia [Unknown]
  - Hypothyroidism [Unknown]
